FAERS Safety Report 6287366-5 (Version None)
Quarter: 2009Q3

REPORT INFORMATION
  Report Type: 
  Country: None (occurrence: None)
  Receive Date: 20090716
  Receipt Date: 20090302
  Transmission Date: 20100115
  Serious: Yes (Other)
  Sender: FDA-Public Use
  Company Number: 2008BI035059

PATIENT
  Age: 40 Year
  Sex: Female
  Weight: 68.0396 kg

DRUGS (3)
  1. AVONEX [Suspect]
     Indication: MULTIPLE SCLEROSIS
     Dosage: 30 UG;QW;IM
     Route: 030
     Dates: start: 20080923
  2. TOPAMAX [Concomitant]
  3. PREV MEDS [Concomitant]

REACTIONS (2)
  - INFLUENZA LIKE ILLNESS [None]
  - PARTIAL SEIZURES [None]
